FAERS Safety Report 25956789 (Version 7)
Quarter: 2025Q4

REPORT INFORMATION
  Report Type: Spontaneous
  Country: AR (occurrence: AR)
  Receive Date: 20251024
  Receipt Date: 20251222
  Transmission Date: 20260118
  Serious: No
  Sender: PFIZER
  Company Number: AR-PFIZER INC-202500209633

PATIENT
  Age: 13 Year
  Sex: Male

DRUGS (1)
  1. GENOTROPIN [Suspect]
     Active Substance: SOMATROPIN
     Indication: Foetal growth restriction
     Dosage: 1.4 MG, 7 TIMES A WEEK
     Dates: start: 20231010, end: 20251029

REACTIONS (9)
  - Injection site haemorrhage [Unknown]
  - Injection site pain [Unknown]
  - Erythema [Unknown]
  - Product contamination [Not Recovered/Not Resolved]
  - Patient-device incompatibility [Unknown]
  - Device mechanical issue [Not Recovered/Not Resolved]
  - Device difficult to use [Unknown]
  - Device information output issue [Unknown]
  - Drug dose omission by device [Unknown]

NARRATIVE: CASE EVENT DATE: 20250901
